FAERS Safety Report 6220185-4 (Version None)
Quarter: 2009Q2

REPORT INFORMATION
  Report Type: 
  Country: None (occurrence: None)
  Receive Date: 20090605
  Receipt Date: 20090525
  Transmission Date: 20091009
  Serious: Yes (Death, Hospitalization)
  Sender: FDA-Public Use
  Company Number: 230001K09TUR

PATIENT
  Age: 20 Year
  Sex: Female

DRUGS (1)
  1. REBIF [Suspect]
     Indication: MULTIPLE SCLEROSIS

REACTIONS (5)
  - ABASIA [None]
  - DECUBITUS ULCER [None]
  - DISEASE PROGRESSION [None]
  - INFECTION [None]
  - MULTIPLE SCLEROSIS [None]
